FAERS Safety Report 22028322 (Version 1)
Quarter: 2023Q1

REPORT INFORMATION
  Report Type: Spontaneous
  Country: US (occurrence: None)
  Receive Date: 20230223
  Receipt Date: 20230223
  Transmission Date: 20230417
  Serious: No
  Sender: FDA-Public Use
  Company Number: US-ROCHE-3129387

PATIENT
  Sex: Female

DRUGS (4)
  1. NUTROPIN [Suspect]
     Active Substance: SOMATROPIN
     Indication: Hypopituitarism
     Dosage: STRENGTH 5MG/2ML.
     Route: 058
     Dates: start: 20220617
  2. NUTROPIN [Suspect]
     Active Substance: SOMATROPIN
  3. ESTROGENS [Concomitant]
     Active Substance: ESTROGENS
  4. PROGESTERONE [Concomitant]
     Active Substance: PROGESTERONE

REACTIONS (1)
  - Abdominal distension [Unknown]
